FAERS Safety Report 18563691 (Version 1)
Quarter: 2020Q4

REPORT INFORMATION
  Report Type: Spontaneous
  Country: US (occurrence: US)
  Receive Date: 20201127
  Receipt Date: 20201127
  Transmission Date: 20210114
  Serious: Yes (Death)
  Sender: FDA-Public Use
  Company Number: None

PATIENT
  Age: 58 Year
  Sex: Female

DRUGS (17)
  1. APAP [Concomitant]
     Active Substance: ACETAMINOPHEN
  2. GABAPENTIN. [Concomitant]
     Active Substance: GABAPENTIN
  3. METFORMIN [Concomitant]
     Active Substance: METFORMIN HYDROCHLORIDE
  4. KYPROLIS [Concomitant]
     Active Substance: CARFILZOMIB
  5. NEPHROCAPS [Concomitant]
     Active Substance: ASCORBIC ACID\BIOTIN\CYANOCOBALAMIN\FOLIC ACID\NIACIN\PANTOTHENIC ACID\PYRIDOXINE\RIBOFLAVIN\THIAMINE
  6. KLOR-CON [Concomitant]
     Active Substance: POTASSIUM CHLORIDE
  7. FAMOTIDINE. [Concomitant]
     Active Substance: FAMOTIDINE
  8. TRAMADOL. [Concomitant]
     Active Substance: TRAMADOL
  9. ACYCLOVIR. [Concomitant]
     Active Substance: ACYCLOVIR
  10. BACLOFEN. [Concomitant]
     Active Substance: BACLOFEN
  11. RISPERIDONE. [Concomitant]
     Active Substance: RISPERIDONE
  12. CA/VITAMIN D3 [Concomitant]
  13. MG OXIDE [Concomitant]
  14. ASA [Concomitant]
     Active Substance: ASPIRIN
  15. ATENOLOL. [Concomitant]
     Active Substance: ATENOLOL
  16. REVLIMID [Suspect]
     Active Substance: LENALIDOMIDE
     Indication: PLASMA CELL MYELOMA
     Route: 048
     Dates: start: 20180531
  17. PAXIL [Concomitant]
     Active Substance: PAROXETINE HYDROCHLORIDE

REACTIONS (3)
  - Intentional overdose [None]
  - Completed suicide [None]
  - Depression [None]

NARRATIVE: CASE EVENT DATE: 20200112
